FAERS Safety Report 5739770-9 (Version None)
Quarter: 2008Q2

REPORT INFORMATION
  Report Type: 
  Country: None (occurrence: None)
  Receive Date: 20080512
  Receipt Date: 20080512
  Transmission Date: 20081010
  Serious: No
  Sender: FDA-Public Use
  Company Number: None

PATIENT
  Sex: Female

DRUGS (7)
  1. REVLIMID [Suspect]
     Indication: MYELODYSPLASTIC SYNDROME
     Dosage: 5MG EVERY OTHER DAY PO
     Route: 048
  2. EVISTA [Concomitant]
  3. FLUOXETINE HCL [Concomitant]
  4. LISINOPRIL AND HYDROCHLOROTHIAZIDE [Concomitant]
  5. VICODIN [Concomitant]
  6. LOMOTIL [Concomitant]
  7. ZYMAR [Concomitant]

REACTIONS (3)
  - BLISTER [None]
  - CELLULITIS [None]
  - NEUTROPENIA [None]
